FAERS Safety Report 16325311 (Version 1)
Quarter: 2019Q2

REPORT INFORMATION
  Report Type: Report from Study
  Country: CA (occurrence: CA)
  Receive Date: 20190517
  Receipt Date: 20190517
  Transmission Date: 20190711
  Serious: Yes (Disabling)
  Sender: FDA-Public Use
  Company Number: CA-JNJFOC-20190135827

PATIENT
  Age: 76 Year
  Sex: Male

DRUGS (2)
  1. ERLEADA [Suspect]
     Active Substance: APALUTAMIDE
     Indication: HORMONE-REFRACTORY PROSTATE CANCER
     Route: 048
     Dates: end: 20190427
  2. ERLEADA [Suspect]
     Active Substance: APALUTAMIDE
     Indication: HORMONE-REFRACTORY PROSTATE CANCER
     Dosage: STRENGTH = 60 MG
     Route: 048
     Dates: start: 201812, end: 20190131

REACTIONS (9)
  - Quality of life decreased [Recovering/Resolving]
  - Loss of consciousness [Unknown]
  - Gait disturbance [Unknown]
  - Fall [Unknown]
  - Choking [Unknown]
  - Hallucination [Recovered/Resolved]
  - Dizziness [Unknown]
  - Bedridden [Unknown]
  - Gastric disorder [Unknown]

NARRATIVE: CASE EVENT DATE: 20190124
